FAERS Safety Report 5362608-9 (Version None)
Quarter: 2007Q2

REPORT INFORMATION
  Report Type: 
  Country: None (occurrence: None)
  Receive Date: 20070619
  Receipt Date: 20070608
  Transmission Date: 20071010
  Serious: Yes (Other)
  Sender: FDA-Public Use
  Company Number: US-PFIZER INC-2007048312

PATIENT
  Sex: Female
  Weight: 145 kg

DRUGS (12)
  1. LIPITOR [Suspect]
     Indication: BLOOD CHOLESTEROL
  2. DIURETICS [Concomitant]
  3. LISINOPRIL [Concomitant]
  4. QUININE SULFATE [Concomitant]
  5. DOXAZOSIN MESYLATE [Concomitant]
  6. BUMETANIDE [Concomitant]
  7. DUONEB [Concomitant]
  8. PULMICORT [Concomitant]
  9. ALBUTEROL [Concomitant]
  10. HYDRALAZINE HCL [Concomitant]
  11. PLAVIX [Concomitant]
  12. VERAPAMIL [Concomitant]

REACTIONS (2)
  - ABASIA [None]
  - MUSCLE SPASMS [None]
